FAERS Safety Report 10424772 (Version 1)
Quarter: 2014Q3

REPORT INFORMATION
  Report Type: Report from Study
  Country: IE (occurrence: IE)
  Receive Date: 20140902
  Receipt Date: 20140902
  Transmission Date: 20150326
  Serious: Yes (Other)
  Sender: FDA-Public Use
  Company Number: IE-US-EMD SERONO, INC.-7317094

PATIENT
  Age: 62 Year
  Sex: Female

DRUGS (1)
  1. REBIF [Suspect]
     Active Substance: INTERFERON BETA-1A
     Indication: RELAPSING-REMITTING MULTIPLE SCLEROSIS
     Route: 058
     Dates: start: 20050912

REACTIONS (8)
  - Lacrimation increased [Unknown]
  - Micturition disorder [Recovered/Resolved]
  - Lower respiratory tract infection [Recovered/Resolved]
  - Blood urine present [Recovered/Resolved]
  - Cyst [Recovering/Resolving]
  - Eye swelling [Recovered/Resolved]
  - Uterine enlargement [Recovered/Resolved]
  - Eye pruritus [Unknown]

NARRATIVE: CASE EVENT DATE: 201407
